FAERS Safety Report 4721462-6 (Version None)
Quarter: 2005Q3

REPORT INFORMATION
  Report Type: 
  Country: None (occurrence: None)
  Receive Date: 20050721
  Receipt Date: 20040923
  Transmission Date: 20060218
  Serious: No
  Sender: FDA-Public Use
  Company Number: US-BRISTOL-MYERS SQUIBB COMPANY-12710000

PATIENT
  Age: 80 Year
  Sex: Female
  Weight: 66 kg

DRUGS (8)
  1. COUMADIN [Suspect]
     Indication: CARDIAC PACEMAKER INSERTION
     Dosage: USING IN VARYING DOSES SINCE 1997; 2MG DAILY
     Route: 048
     Dates: start: 19970101
  2. OTHERS (NOS) [Suspect]
     Dosage: VITA THERAPY HAND CREAM USING ABOUT 4 WEEKS AGO
     Route: 061
     Dates: start: 20040801
  3. AMBIEN [Concomitant]
  4. PRILOSEC [Concomitant]
  5. FLONASE [Concomitant]
  6. VICODIN ES [Concomitant]
  7. ADVAIR DISKUS 100/50 [Concomitant]
  8. SINGULAIR [Concomitant]

REACTIONS (1)
  - INTERNATIONAL NORMALISED RATIO INCREASED [None]
